FAERS Safety Report 24229965 (Version 1)
Quarter: 2024Q3

REPORT INFORMATION
  Report Type: Spontaneous
  Country: US (occurrence: None)
  Receive Date: 20240820
  Receipt Date: 20240820
  Transmission Date: 20241017
  Serious: Yes (Death)
  Sender: Public
  Company Number: None

PATIENT
  Sex: Female

DRUGS (1)
  1. PIRFENIDONE [Suspect]
     Active Substance: PIRFENIDONE
     Indication: Idiopathic pulmonary fibrosis
     Dosage: OTHER QUANTITY : TAKE 1 TABLET;?FREQUENCY : 3 TIMES A DAY;?
     Route: 048
     Dates: start: 20240702

REACTIONS (1)
  - Death [None]
